FAERS Safety Report 6032466-8 (Version None)
Quarter: 2009Q1

REPORT INFORMATION
  Report Type: 
  Country: None (occurrence: None)
  Receive Date: 20090107
  Receipt Date: 20081223
  Transmission Date: 20090719
  Serious: Yes (Death, Hospitalization)
  Sender: FDA-Public Use
  Company Number: KV200801481

PATIENT
  Age: 79 Year
  Sex: Female

DRUGS (2)
  1. ISOSORBIDE MONONITRATE [Suspect]
     Indication: DRUG USE FOR UNKNOWN INDICATION
     Dosage: ORAL
     Route: 048
     Dates: end: 20080401
  2. NUMEROUS UNSPECIFIED MEDICATIONS [Concomitant]

REACTIONS (3)
  - MYOCARDIAL INFARCTION [None]
  - PRODUCT QUALITY ISSUE [None]
  - RENAL FAILURE [None]
